FAERS Safety Report 7023635-9 (Version None)
Quarter: 2010Q3

REPORT INFORMATION
  Report Type: 
  Country: None (occurrence: None)
  Receive Date: 20100930
  Receipt Date: 20100930
  Transmission Date: 20110219
  Serious: Yes (Life-Threatening, Hospitalization)
  Sender: FDA-Public Use
  Company Number: None

PATIENT
  Age: 73 Year
  Sex: Male
  Weight: 90.7194 kg

DRUGS (1)
  1. OCTAGAM [Suspect]
     Indication: IMMUNE SYSTEM DISORDER
     Dosage: 30 GRAMS EVERY 2 WEEKS IV DRIP
     Route: 041
     Dates: start: 20050101, end: 20100914

REACTIONS (1)
  - CEREBROVASCULAR ACCIDENT [None]
